FAERS Safety Report 13710049 (Version 1)
Quarter: 2017Q3

REPORT INFORMATION
  Report Type: Spontaneous
  Country: US (occurrence: US)
  Receive Date: 20170703
  Receipt Date: 20170703
  Transmission Date: 20171127
  Serious: No
  Sender: FDA-Public Use
  Company Number: US-TEVA-710784USA

PATIENT
  Sex: Male

DRUGS (1)
  1. LIDODERM 5 [Suspect]
     Active Substance: LIDOCAINE
     Route: 065

REACTIONS (3)
  - Application site rash [Recovered/Resolved]
  - Drug hypersensitivity [Recovered/Resolved]
  - Application site haemorrhage [Recovered/Resolved]
